FAERS Safety Report 14880944 (Version 10)
Quarter: 2019Q1

REPORT INFORMATION
  Report Type: Report from Study
  Country: US (occurrence: US)
  Receive Date: 20180511
  Receipt Date: 20190325
  Transmission Date: 20190417
  Serious: Yes (Hospitalization)
  Sender: FDA-Public Use
  Company Number: US-TESARO, INC.-US-2018TSO01529

PATIENT
  Age: 40 Year
  Sex: Female

DRUGS (2)
  1. ZEJULA [Suspect]
     Active Substance: NIRAPARIB
     Indication: OVARIAN CANCER
     Dosage: 100 MG, QPM WITH FOOD
     Route: 048
     Dates: start: 20180324
  2. LOVENOX [Concomitant]
     Active Substance: ENOXAPARIN SODIUM
     Indication: THROMBOSIS
     Dosage: UNK

REACTIONS (12)
  - Retinal artery thrombosis [Recovered/Resolved]
  - Laziness [Not Recovered/Not Resolved]
  - Migraine [Unknown]
  - Product dose omission [Unknown]
  - Emotional distress [Unknown]
  - Underdose [Not Recovered/Not Resolved]
  - Headache [Not Recovered/Not Resolved]
  - Nuclear magnetic resonance imaging brain abnormal [Unknown]
  - Constipation [Not Recovered/Not Resolved]
  - Blood magnesium decreased [Unknown]
  - Muscle spasms [Unknown]
  - Nausea [Not Recovered/Not Resolved]

NARRATIVE: CASE EVENT DATE: 20180324
